FAERS Safety Report 4629493-1 (Version None)
Quarter: 2005Q2

REPORT INFORMATION
  Report Type: 
  Country: None (occurrence: None)
  Receive Date: 20050405
  Receipt Date: 20040716
  Transmission Date: 20051028
  Serious: Yes (Death)
  Sender: FDA-Public Use
  Company Number: 213455

PATIENT
  Age: 56 Year
  Sex: Male
  Weight: 85 kg

DRUGS (1)
  1. AVASTIN [Suspect]
     Indication: METASTASIS
     Dosage: INTRAVENOUS
     Route: 042

REACTIONS (4)
  - PNEUMONIA BACTERIAL [None]
  - PNEUMONIA FUNGAL [None]
  - POSTOPERATIVE INFECTION [None]
  - RESPIRATORY FAILURE [None]
